FAERS Safety Report 21722080 (Version 1)
Quarter: 2022Q4

REPORT INFORMATION
  Report Type: Other
  Country: None (occurrence: CN)
  Receive Date: 20221213
  Receipt Date: 20221213
  Transmission Date: 20230112
  Serious: Yes (Life-Threatening, Other)
  Sender: FDA-Public Use
  Company Number: CN-Breckenridge Pharmaceutical, Inc.-2135821

PATIENT
  Age: 64 Year
  Sex: Female

DRUGS (1)
  1. ZOLEDRONIC ACID [Suspect]
     Active Substance: ZOLEDRONIC ACID
     Indication: Lung adenocarcinoma
     Route: 042

REACTIONS (7)
  - Hypophosphataemia [Recovering/Resolving]
  - Fanconi syndrome [Unknown]
  - Renal tubular acidosis [Unknown]
  - Renal tubular necrosis [Unknown]
  - Ammonia increased [Unknown]
  - Hypokalaemia [Unknown]
  - Metabolic acidosis [Unknown]
